FAERS Safety Report 5937738-0 (Version None)
Quarter: 2008Q4

REPORT INFORMATION
  Report Type: 
  Country: None (occurrence: None)
  Receive Date: 20081031
  Receipt Date: 20080327
  Transmission Date: 20090506
  Serious: No
  Sender: FDA-Public Use
  Company Number: US-BAYER-200811359BCC

PATIENT
  Sex: Female
  Weight: 77 kg

DRUGS (12)
  1. ALEVE [Suspect]
     Indication: MUSCULOSKELETAL PAIN
     Dosage: TOTAL DAILY DOSE: 220 MG  UNIT DOSE: 220 MG
     Route: 048
     Dates: start: 20080301
  2. VYTORIN [Concomitant]
  3. NAPROSYN [Concomitant]
  4. EFFEXOR [Concomitant]
  5. VITAMIN B-12 [Concomitant]
  6. COSOPT [Concomitant]
  7. EYE DROPS [Concomitant]
  8. ASPIRIN [Concomitant]
  9. PLAVIX [Concomitant]
  10. BLOOD PRESSURE MEDICATION [Concomitant]
  11. NASACORT [Concomitant]
  12. DRAMAMINE [Concomitant]

REACTIONS (1)
  - MUSCULOSKELETAL PAIN [None]
